FAERS Safety Report 10189966 (Version 2)
Quarter: 2014Q2

REPORT INFORMATION
  Report Type: Spontaneous
  Country: TW (occurrence: TW)
  Receive Date: 20140522
  Receipt Date: 20140602
  Transmission Date: 20141212
  Serious: Yes (Hospitalization, Other)
  Sender: FDA-Public Use
  Company Number: TW-AMGEN INC.-TWNSP2014037439

PATIENT
  Age: 7 Decade
  Sex: Female

DRUGS (1)
  1. ENBREL [Suspect]
     Indication: RHEUMATOID ARTHRITIS
     Dosage: 25 MG
     Route: 058
     Dates: start: 2004

REACTIONS (3)
  - Limb injury [Recovered/Resolved]
  - Cellulitis [Recovered/Resolved]
  - Tuberculosis [Not Recovered/Not Resolved]
